FAERS Safety Report 12124019 (Version 1)
Quarter: 2016Q1

REPORT INFORMATION
  Report Type: Spontaneous
  Country: US (occurrence: US)
  Receive Date: 20160229
  Receipt Date: 20160229
  Transmission Date: 20160526
  Serious: No
  Sender: FDA-Public Use
  Company Number: US-PFIZER INC-2016061084

PATIENT
  Sex: Female

DRUGS (12)
  1. CELEBREX [Suspect]
     Active Substance: CELECOXIB
  2. EFFEXOR XR [Suspect]
     Active Substance: VENLAFAXINE HYDROCHLORIDE
  3. AZITHROMYCIN ANHYDROUS. [Suspect]
     Active Substance: AZITHROMYCIN ANHYDROUS
  4. LORABID [Suspect]
     Active Substance: LORACARBEF
  5. VIOXX [Suspect]
     Active Substance: ROFECOXIB
  6. BACTRIM [Suspect]
     Active Substance: SULFAMETHOXAZOLE\TRIMETHOPRIM
  7. AUGMENTIN [Suspect]
     Active Substance: AMOXICILLIN\CLAVULANATE POTASSIUM
  8. CODEINE [Suspect]
     Active Substance: CODEINE
  9. POTASSIUM [Suspect]
     Active Substance: POTASSIUM
  10. KEFLEX [Suspect]
     Active Substance: CEPHALEXIN
  11. CYMBALTA [Suspect]
     Active Substance: DULOXETINE HYDROCHLORIDE
  12. LEVAQUIN [Suspect]
     Active Substance: LEVOFLOXACIN

REACTIONS (2)
  - Drug hypersensitivity [Unknown]
  - Drug prescribing error [Unknown]
